FAERS Safety Report 7115419-8 (Version None)
Quarter: 2010Q4

REPORT INFORMATION
  Report Type: 
  Country: None (occurrence: None)
  Receive Date: 20101122
  Receipt Date: 20101112
  Transmission Date: 20110411
  Serious: Yes (Other)
  Sender: FDA-Public Use
  Company Number: US-JNJFOC-20100703828

PATIENT
  Sex: Female
  Weight: 71.22 kg

DRUGS (1)
  1. LEVAQUIN [Suspect]
     Indication: URINARY TRACT INFECTION
     Route: 048

REACTIONS (24)
  - ARTHRALGIA [None]
  - ARTHROPATHY [None]
  - BURNING SENSATION [None]
  - CARTILAGE INJURY [None]
  - CONTUSION [None]
  - CYST [None]
  - CYSTITIS NONINFECTIVE [None]
  - FIBROMYALGIA [None]
  - INTENTIONAL DRUG MISUSE [None]
  - JOINT INJURY [None]
  - MOVEMENT DISORDER [None]
  - MUSCLE SPASMS [None]
  - MYALGIA [None]
  - MYOSITIS [None]
  - NEUROPATHY PERIPHERAL [None]
  - OEDEMA PERIPHERAL [None]
  - PAIN IN EXTREMITY [None]
  - SELF-MEDICATION [None]
  - SOMNOLENCE [None]
  - SYSTEMIC LUPUS ERYTHEMATOSUS [None]
  - TENDON DISORDER [None]
  - TENDON PAIN [None]
  - TENDONITIS [None]
  - URINARY TRACT INFECTION [None]
